FAERS Safety Report 5928263-1 (Version None)
Quarter: 2008Q4

REPORT INFORMATION
  Report Type: 
  Country: None (occurrence: None)
  Receive Date: 20081023
  Receipt Date: 20081021
  Transmission Date: 20090506
  Serious: Yes (Hospitalization)
  Sender: FDA-Public Use
  Company Number: AT-BAYER-200828776GPV

PATIENT
  Sex: Female

DRUGS (9)
  1. AVELOX [Suspect]
     Indication: SINUSITIS
     Dosage: TOTAL DAILY DOSE: 400 MG  UNIT DOSE: 400 MG
     Route: 048
     Dates: start: 20080825, end: 20080831
  2. XICLAV [Suspect]
     Indication: SINUSITIS
     Dosage: TOTAL DAILY DOSE: 2 G
     Route: 065
     Dates: start: 20080814, end: 20080821
  3. METOPROLOL TARTRATE [Concomitant]
     Indication: HYPERTENSION
     Route: 065
  4. CO-ACETAN [Concomitant]
     Indication: HYPERTENSION
     Route: 065
  5. PARKEMED [Concomitant]
     Indication: PYREXIA
     Route: 065
  6. MEXALEN [Concomitant]
     Indication: PYREXIA
     Route: 065
  7. FENTRINOL [Concomitant]
     Indication: NASOPHARYNGITIS
     Route: 065
  8. JOSALID [Concomitant]
     Indication: SINUSITIS
     Route: 065
  9. XICLAV [Concomitant]
     Route: 065

REACTIONS (2)
  - RENAL FAILURE ACUTE [None]
  - TUBULOINTERSTITIAL NEPHRITIS [None]
